FAERS Safety Report 5002519-1 (Version None)
Quarter: 2006Q2

REPORT INFORMATION
  Report Type: 
  Country: None (occurrence: None)
  Receive Date: 20060509
  Receipt Date: 20060504
  Transmission Date: 20061013
  Serious: Yes (Death, Life-Threatening)
  Sender: FDA-Public Use
  Company Number: HQWYE641705APR06

PATIENT
  Age: 51 Year
  Sex: Female

DRUGS (26)
  1. IMIPENEM/CILASTATIN [Suspect]
     Indication: PNEUMONIA
     Dosage: 1 G 1X PER 8 HR, INTRAVENOUS
     Route: 042
     Dates: start: 20060317, end: 20060328
  2. HYDROCORTISONE [Concomitant]
  3. SALBUTAMOL (SALBUTAMOL) [Concomitant]
  4. IPRATROPIUM BROMIDE [Concomitant]
  5. RANITIDINE [Concomitant]
  6. MOSAPRAMINE (MOSAPRAMINE) [Concomitant]
  7. HEPARIN [Concomitant]
  8. THEOPHYLLINE [Concomitant]
  9. DOPAMINE HCL [Concomitant]
  10. LEVOTHYROXINE SODIUM [Concomitant]
  11. FENTANYL [Concomitant]
  12. DESMOPRESSIN ACETATE (DESMOPRESSIN ACETATE) [Concomitant]
  13. SODIUM CHLORIDE 0.9% [Concomitant]
  14. FOLIC ACID [Concomitant]
  15. MIDAZOLAM HCL [Concomitant]
  16. MORPHINE [Interacting]
  17. PANCURONIUM BROMIDE [Concomitant]
  18. ATROPINE [Concomitant]
  19. OMEPRAZOLE [Concomitant]
  20. HAEMACCEL (POLYGELINE) [Concomitant]
  21. PHYTONADIONE [Concomitant]
  22. MANNITOL [Concomitant]
  23. POTASSIUM CHLORIDE [Concomitant]
  24. FUROSEMIDE [Concomitant]
  25. INSULIN [Concomitant]
  26. ENALAPRIL MALEATE [Concomitant]

REACTIONS (8)
  - BRADYCARDIA [None]
  - CARDIAC ARREST [None]
  - CEREBRAL INFARCTION [None]
  - DEPRESSED LEVEL OF CONSCIOUSNESS [None]
  - HAEMOPTYSIS [None]
  - RED BLOOD CELL SCHISTOCYTES PRESENT [None]
  - THROMBOCYTOPENIC PURPURA [None]
  - VENTRICULAR FIBRILLATION [None]
